FAERS Safety Report 8834506 (Version 3)
Quarter: 2013Q1

REPORT INFORMATION
  Report Type: Spontaneous
  Country: US (occurrence: US)
  Receive Date: 20121010
  Receipt Date: 20130114
  Transmission Date: 20140127
  Serious: Yes (Other)
  Sender: FDA-Public Use
  Company Number: US-ASTRAZENECA-2012SE74299

PATIENT
  Age: 76 Year
  Sex: Male

DRUGS (2)
  1. NEXIUM [Suspect]
     Route: 048
  2. ANOTHER MEDICATION [Suspect]
     Route: 065

REACTIONS (4)
  - Oesophageal carcinoma [Unknown]
  - Barrett^s oesophagus [Unknown]
  - Adverse drug reaction [Unknown]
  - Hearing impaired [Unknown]
